FAERS Safety Report 4414980-1 (Version None)
Quarter: 2004Q3

REPORT INFORMATION
  Report Type: 
  Country: None (occurrence: None)
  Receive Date: 20040803
  Receipt Date: 20040803
  Transmission Date: 20050211
  Serious: Yes (Hospitalization)
  Sender: FDA-Public Use
  Company Number: None

PATIENT
  Age: 92 Year
  Sex: Female
  Weight: 69.4003 kg

DRUGS (1)
  1. TARCEVA  OSI-774  ERLOTINIB [Suspect]
     Indication: NON-SMALL CELL LUNG CANCER
     Dosage: 150  MG  BUCCAL
     Route: 002
     Dates: start: 20040618, end: 20040628

REACTIONS (2)
  - PLEURAL EFFUSION [None]
  - RENAL FAILURE ACUTE [None]
